FAERS Safety Report 5078575-1 (Version None)
Quarter: 2006Q3

REPORT INFORMATION
  Report Type: 
  Country: None (occurrence: None)
  Receive Date: 20060808
  Receipt Date: 20060725
  Transmission Date: 20061208
  Serious: Yes (Hospitalization)
  Sender: FDA-Public Use
  Company Number: 2006PV018171

PATIENT
  Sex: Female

DRUGS (4)
  1. BYETTA [Suspect]
     Indication: DIABETES MELLITUS NON-INSULIN-DEPENDENT
     Dosage: 5 MCG; SC
     Route: 058
  2. CYMBALTA [Concomitant]
  3. LANTUS [Concomitant]
  4. ACE INHIBITOR [Concomitant]

REACTIONS (2)
  - CONDITION AGGRAVATED [None]
  - DEPRESSION [None]
